FAERS Safety Report 7267903-4 (Version None)
Quarter: 2011Q1

REPORT INFORMATION
  Report Type: 
  Country: None (occurrence: None)
  Receive Date: 20110201
  Receipt Date: 20110124
  Transmission Date: 20110831
  Serious: Yes (Life-Threatening)
  Sender: FDA-Public Use
  Company Number: DE-JNJFOC-20100202242

PATIENT
  Age: 69 Year
  Sex: Female

DRUGS (3)
  1. HEPARIN [Concomitant]
  2. REOPRO [Suspect]
     Dosage: 12:30 TO 18:45
     Route: 042
  3. REOPRO [Suspect]
     Indication: ACUTE MYOCARDIAL INFARCTION
     Dosage: 11:57 TO 11:59
     Route: 042

REACTIONS (2)
  - SHOCK HAEMORRHAGIC [None]
  - RETROPERITONEAL HAEMATOMA [None]
